FAERS Safety Report 11861153 (Version 3)
Quarter: 2016Q1

REPORT INFORMATION
  Report Type: Spontaneous
  Country: JP (occurrence: JP)
  Receive Date: 20151222
  Receipt Date: 20160307
  Transmission Date: 20160526
  Serious: Yes (Hospitalization)
  Sender: FDA-Public Use
  Company Number: PHJP2015JP019281

PATIENT
  Age: 72 Year
  Sex: Female
  Weight: 31 kg

DRUGS (3)
  1. EXJADE [Suspect]
     Active Substance: DEFERASIROX
     Indication: HAEMOSIDEROSIS
     Dosage: 5 MG/KG, QD
     Route: 048
     Dates: start: 20150926, end: 20151021
  2. NEORAL [Suspect]
     Active Substance: CYCLOSPORINE
     Indication: APLASIA PURE RED CELL
     Dosage: 100 MG, QD
     Route: 048
     Dates: start: 20100702
  3. DESFERAL [Concomitant]
     Active Substance: DEFEROXAMINE MESYLATE
     Indication: IRON OVERLOAD
     Dosage: 1000 MG, QD
     Route: 030
     Dates: start: 20090216

REACTIONS (4)
  - Pyrexia [Recovering/Resolving]
  - Pneumonia staphylococcal [Recovering/Resolving]
  - Stomatitis [Recovering/Resolving]
  - Feeding disorder [Unknown]

NARRATIVE: CASE EVENT DATE: 20151009
